FAERS Safety Report 21636571 (Version 6)
Quarter: 2022Q4

REPORT INFORMATION
  Report Type: Report from Study
  Country: ES (occurrence: ES)
  Receive Date: 20221124
  Receipt Date: 20221221
  Transmission Date: 20230112
  Serious: Yes (Hospitalization)
  Sender: FDA-Public Use
  Company Number: ES-002147023-NVSC2022ES261900

PATIENT
  Age: 51 Year
  Sex: Female
  Weight: 95.2 kg

DRUGS (11)
  1. TISLELIZUMAB [Suspect]
     Active Substance: TISLELIZUMAB
     Indication: Colorectal cancer
     Dosage: 300 MG, Q4W
     Route: 042
     Dates: start: 20220926, end: 20221121
  2. DABRAFENIB [Suspect]
     Active Substance: DABRAFENIB
     Indication: Colorectal cancer
     Dosage: 150 MG, CONT
     Route: 048
     Dates: start: 20220926, end: 20221121
  3. DABRAFENIB [Suspect]
     Active Substance: DABRAFENIB
     Dosage: 100 MG, CONT
     Route: 048
     Dates: start: 20221201
  4. FAMOTIDINE [Concomitant]
     Active Substance: FAMOTIDINE
     Indication: Gastritis prophylaxis
     Dosage: UNK
     Route: 065
     Dates: start: 202112
  5. RETINOL\TOCOPHEROL [Concomitant]
     Active Substance: RETINOL\TOCOPHEROL
     Indication: Paraesthesia
     Dosage: UNK
     Route: 065
     Dates: start: 20220801
  6. UNSPECIFIED INGREDIENT [Concomitant]
     Active Substance: UNSPECIFIED INGREDIENT
     Indication: Prophylaxis
     Dosage: UNK
     Route: 065
     Dates: start: 20220904
  7. BEMIPARIN [Concomitant]
     Active Substance: BEMIPARIN
     Indication: Prophylaxis
     Dosage: UNK
     Route: 065
     Dates: start: 20220830
  8. METAMIZOLE [Concomitant]
     Active Substance: METAMIZOLE
     Indication: Pain in extremity
     Dosage: UNK
     Route: 065
     Dates: start: 20220501
  9. METAMIZOLE [Concomitant]
     Active Substance: METAMIZOLE
     Indication: Abdominal pain lower
  10. TRAMADOL [Concomitant]
     Active Substance: TRAMADOL
     Indication: Pain in extremity
     Dosage: UNK
     Route: 065
     Dates: start: 20220601
  11. BUDESONIDE [Concomitant]
     Active Substance: BUDESONIDE
     Indication: Asthma
     Dosage: UNK
     Route: 065
     Dates: start: 20221004

REACTIONS (1)
  - Hypertransaminasaemia [Recovered/Resolved]

NARRATIVE: CASE EVENT DATE: 20221121
